FAERS Safety Report 25884666 (Version 1)
Quarter: 2025Q4

REPORT INFORMATION
  Report Type: Spontaneous
  Country: US (occurrence: US)
  Receive Date: 20251006
  Receipt Date: 20251006
  Transmission Date: 20260118
  Serious: No
  Sender: RANBAXY
  Company Number: US-SUN PHARMACEUTICAL INDUSTRIES LTD-2024R1-472375

PATIENT
  Sex: Female

DRUGS (6)
  1. CEQUA [Suspect]
     Active Substance: CYCLOSPORINE
     Indication: Dry eye
     Dosage: UNK
     Route: 047
     Dates: start: 20240921
  2. PREDNISOLONE [Suspect]
     Active Substance: PREDNISOLONE
     Indication: Hypersensitivity
     Dosage: ONE DROP EACH EYE, 3X A DAY
     Route: 047
     Dates: start: 20240926
  3. MELOXICAM [Concomitant]
     Active Substance: MELOXICAM
     Indication: Product used for unknown indication
     Dosage: UNK
     Route: 065
  4. PILOCARPINE [Concomitant]
     Active Substance: PILOCARPINE
     Indication: Product used for unknown indication
     Dosage: UNK
     Route: 065
  5. Linzeff [Concomitant]
     Indication: Constipation
     Dosage: UNK
     Route: 065
  6. Linzeff [Concomitant]
     Indication: Constipation

REACTIONS (3)
  - Eye irritation [Unknown]
  - Product dose omission issue [Unknown]
  - Product prescribing issue [Unknown]
